FAERS Safety Report 5454506-7 (Version None)
Quarter: 2007Q3

REPORT INFORMATION
  Report Type: 
  Country: None (occurrence: None)
  Receive Date: 20070917
  Receipt Date: 20070913
  Transmission Date: 20080115
  Serious: Yes (Life-Threatening, Disabling)
  Sender: FDA-Public Use
  Company Number: LB-ABBOTT-07P-093-0416959-00

PATIENT
  Age: 21 Year
  Sex: Male

DRUGS (4)
  1. DEPAKENE [Suspect]
     Indication: DRUG USE FOR UNKNOWN INDICATION
     Route: 048
  2. VENLAFAXINE HCL [Concomitant]
     Indication: DEPRESSION
     Route: 048
  3. UNSPECIFIED MEDICATION [Concomitant]
     Indication: MANIA
  4. UNSPECIFIED MEDICATION [Concomitant]

REACTIONS (2)
  - UNEVALUABLE EVENT [None]
  - VASCULITIS CEREBRAL [None]
